FAERS Safety Report 18886204 (Version 1)
Quarter: 2021Q1

REPORT INFORMATION
  Report Type: Spontaneous
  Country: FR (occurrence: FR)
  Receive Date: 20210212
  Receipt Date: 20210212
  Transmission Date: 20210420
  Serious: Yes (Hospitalization)
  Sender: FDA-Public Use
  Company Number: FR-BAYER-2021-061787

PATIENT
  Age: 83 Year
  Sex: Female
  Weight: 68 kg

DRUGS (1)
  1. NAPROXENE BAYER 220 MG [Suspect]
     Active Substance: NAPROXEN
     Indication: OSTEOARTHRITIS
     Dosage: 550 MG
     Route: 048
     Dates: start: 20210107, end: 20210112

REACTIONS (1)
  - Meningitis aseptic [Recovering/Resolving]

NARRATIVE: CASE EVENT DATE: 20210114
